FAERS Safety Report 26184619 (Version 1)
Quarter: 2025Q4

REPORT INFORMATION
  Report Type: Spontaneous
  Country: EU (occurrence: EU)
  Receive Date: 20251222
  Receipt Date: 20251222
  Transmission Date: 20260118
  Serious: Yes (Hospitalization)
  Sender: ABBVIE
  Company Number: None

PATIENT
  Age: 40 Year
  Sex: Female
  Weight: 56 kg

DRUGS (1)
  1. RINVOQ [Suspect]
     Active Substance: UPADACITINIB
     Indication: Psoriatic arthropathy
     Dosage: RINVOQ 15 MG?PROLONGED-RELEASE TABLET
     Route: 048
     Dates: start: 20250506

REACTIONS (1)
  - Pelvic congestion [Not Recovered/Not Resolved]

NARRATIVE: CASE EVENT DATE: 20250519
